FAERS Safety Report 12979945 (Version 5)
Quarter: 2017Q1

REPORT INFORMATION
  Report Type: Report from Study
  Country: US (occurrence: US)
  Receive Date: 20161128
  Receipt Date: 20170117
  Transmission Date: 20170428
  Serious: Yes (Hospitalization, Other)
  Sender: FDA-Public Use
  Company Number: US-BAYER-2016-222510

PATIENT
  Age: 75 Year
  Sex: Male

DRUGS (1)
  1. NEXAVAR [Suspect]
     Active Substance: SORAFENIB
     Indication: RENAL CELL CARCINOMA
     Dosage: 400 MG, BID
     Route: 048
     Dates: start: 20161111, end: 20161212

REACTIONS (11)
  - Stomatitis [None]
  - Haematuria [None]
  - Muscular weakness [None]
  - Pain in extremity [Recovering/Resolving]
  - Hypotension [None]
  - Gout [Recovering/Resolving]
  - Oedema peripheral [Recovering/Resolving]
  - Blood glucose increased [None]
  - Arthralgia [Recovering/Resolving]
  - Diarrhoea [None]
  - Dysuria [None]

NARRATIVE: CASE EVENT DATE: 2016
